FAERS Safety Report 7011064-3 (Version None)
Quarter: 2010Q3

REPORT INFORMATION
  Report Type: 
  Country: None (occurrence: None)
  Receive Date: 20100922
  Receipt Date: 20100922
  Transmission Date: 20110219
  Serious: No
  Sender: FDA-Public Use
  Company Number: None

PATIENT
  Age: 45 Year
  Sex: Female
  Weight: 64.4108 kg

DRUGS (2)
  1. CYMBALTA [Suspect]
     Indication: DEPRESSION
     Dosage: 20 MG CAPSULES ONCE DAILY PO
     Route: 048
     Dates: start: 20100730, end: 20100912
  2. 5 HOUR ENERGY N/A LIVING ESSENTIALS [Suspect]
     Indication: CHRONIC FATIGUE SYNDROME
     Dosage: 5 HR ENGERY SAME PO OFF AND ON OVER 1
     Route: 048
     Dates: start: 20090101, end: 20100830

REACTIONS (9)
  - ACNE [None]
  - BLISTER [None]
  - CHEST PAIN [None]
  - ENERGY INCREASED [None]
  - EUPHORIC MOOD [None]
  - FATIGUE [None]
  - HYPERSENSITIVITY [None]
  - PRURITUS [None]
  - SCAR [None]
